FAERS Safety Report 7185927-2 (Version None)
Quarter: 2010Q4

REPORT INFORMATION
  Report Type: 
  Country: None (occurrence: None)
  Receive Date: 20101222
  Receipt Date: 20101220
  Transmission Date: 20110411
  Serious: Yes (Life-Threatening)
  Sender: FDA-Public Use
  Company Number: GB-PERRIGO-10GB015659

PATIENT
  Age: 43 Year
  Sex: Female
  Weight: 64.5 kg

DRUGS (3)
  1. IBUPROFEN [Suspect]
     Indication: CHEST PAIN
     Dosage: 200 MG, UNK
     Route: 048
     Dates: start: 20100801, end: 20101029
  2. IBUPROFEN [Suspect]
     Indication: ABDOMINAL PAIN UPPER
  3. PARACETAMOL [Concomitant]
     Indication: PRODUCT USED FOR UNKNOWN INDICATION
     Dosage: 1 G, UNK
     Route: 048

REACTIONS (2)
  - DUODENAL ULCER PERFORATION [None]
  - GASTRIC HAEMORRHAGE [None]
